FAERS Safety Report 15230695 (Version 2)
Quarter: 2020Q2

REPORT INFORMATION
  Report Type: Spontaneous
  Country: US (occurrence: US)
  Receive Date: 20180802
  Receipt Date: 20200601
  Transmission Date: 20200713
  Serious: No
  Sender: FDA-Public Use
  Company Number: US-SA-2018SA206659

PATIENT
  Age: 56 Year
  Sex: Female

DRUGS (2)
  1. LANTUS SOLOSTAR [Suspect]
     Active Substance: INSULIN GLARGINE
     Indication: TYPE 2 DIABETES MELLITUS
     Dosage: 25 IU IN THE MORNING AND 30 UNITS IN THE EVENING
     Route: 065
  2. LANTUS SOLOSTAR [Suspect]
     Active Substance: INSULIN GLARGINE
     Dosage: 25 UNITS IN AM AND 40 UNITS IN EVENING

REACTIONS (3)
  - Inappropriate schedule of product administration [Unknown]
  - Aphonia [Unknown]
  - Visual impairment [Unknown]
